FAERS Safety Report 14610598 (Version 2)
Quarter: 2018Q1

REPORT INFORMATION
  Report Type: Spontaneous
  Country: PT (occurrence: PT)
  Receive Date: 20180307
  Receipt Date: 20180313
  Transmission Date: 20180509
  Serious: Yes (Other)
  Sender: FDA-Public Use
  Company Number: PT-009507513-1802PRT013512

PATIENT
  Age: 59 Year

DRUGS (6)
  1. ETORICOXIB [Concomitant]
     Active Substance: ETORICOXIB
  2. DIPROFOS DEPOT [Suspect]
     Active Substance: BETAMETHASONE DIPROPIONATE\BETAMETHASONE SODIUM PHOSPHATE
     Dosage: TREATMENT IN THE BEGINNING OF NOVEMBER
     Route: 030
  3. DEFLAZACORT [Suspect]
     Active Substance: DEFLAZACORT
     Dosage: 30 MG, Q24H, DURING THE LAST 3 WEEKS OF NOVEMBER
     Route: 048
  4. VENLAFAXINE HYDROCHLORIDE. [Concomitant]
     Active Substance: VENLAFAXINE HYDROCHLORIDE
  5. LENDORMIN [Concomitant]
     Active Substance: BROTIZOLAM
  6. ATENOLOL. [Concomitant]
     Active Substance: ATENOLOL

REACTIONS (5)
  - Tachycardia [Recovered/Resolved]
  - Hyperphagia [Recovered/Resolved]
  - Drug eruption [Recovered/Resolved]
  - Insomnia [Recovered/Resolved]
  - Face oedema [Recovered/Resolved]
